FAERS Safety Report 9303627 (Version 1)
Quarter: 2013Q2

REPORT INFORMATION
  Report Type: Spontaneous
  Country: BR (occurrence: BR)
  Receive Date: 20130522
  Receipt Date: 20130522
  Transmission Date: 20140414
  Serious: Yes (Hospitalization, Other)
  Sender: FDA-Public Use
  Company Number: BR-PFIZER INC-2013152421

PATIENT
  Age: 59 Year
  Sex: Male

DRUGS (6)
  1. LIPITOR [Suspect]
     Indication: BLOOD CHOLESTEROL
     Dosage: UNK
     Route: 048
     Dates: start: 201211
  2. ASPIRINA PREVENT [Concomitant]
  3. SELOZOK [Concomitant]
  4. GALVUS [Concomitant]
  5. GLIMEPIRIDE [Concomitant]
  6. LOSARTAN [Concomitant]

REACTIONS (3)
  - Cardiac disorder [Unknown]
  - Diabetes mellitus [Not Recovered/Not Resolved]
  - Renal failure [Not Recovered/Not Resolved]
